FAERS Safety Report 6574490-2 (Version None)
Quarter: 2010Q1

REPORT INFORMATION
  Report Type: 
  Country: None (occurrence: None)
  Receive Date: 20100209
  Receipt Date: 20090924
  Transmission Date: 20100710
  Serious: No
  Sender: FDA-Public Use
  Company Number: A0808870A

PATIENT
  Age: 41 Year
  Sex: Male

DRUGS (2)
  1. PAROXETINE HCL [Suspect]
     Indication: DEPRESSION
     Dosage: 20MG UNKNOWN
     Route: 048
     Dates: start: 20090101
  2. NO CONCURRENT MEDICATION [Concomitant]

REACTIONS (3)
  - DRUG EFFECT DECREASED [None]
  - DRUG INEFFECTIVE [None]
  - ILL-DEFINED DISORDER [None]
